FAERS Safety Report 5722492-8 (Version None)
Quarter: 2008Q2

REPORT INFORMATION
  Report Type: 
  Country: None (occurrence: None)
  Receive Date: 20080429
  Receipt Date: 20071112
  Transmission Date: 20081010
  Serious: No
  Sender: FDA-Public Use
  Company Number: US-ASTRAZENECA-2007UW26199

PATIENT
  Age: 78 Year
  Sex: Female

DRUGS (5)
  1. NEXIUM [Suspect]
     Indication: REFLUX OESOPHAGITIS
     Route: 048
     Dates: start: 20040101
  2. ZOCOR [Concomitant]
  3. SYNTHROID [Concomitant]
  4. NORVASC [Concomitant]
  5. ZOLOFT [Concomitant]

REACTIONS (2)
  - CHEST PAIN [None]
  - OESOPHAGEAL PAIN [None]
